FAERS Safety Report 8840856 (Version 1)
Quarter: 2012Q4

REPORT INFORMATION
  Report Type: Report from Study
  Country: BR (occurrence: BR)
  Receive Date: 20121015
  Receipt Date: 20121015
  Transmission Date: 20130627
  Serious: Yes (Other)
  Sender: FDA-Public Use
  Company Number: BR-ROCHE-674945

PATIENT
  Age: 53 Year
  Sex: Female
  Weight: 103 kg

DRUGS (9)
  1. RITUXIMAB [Suspect]
     Indication: RHEUMATOID ARTHRITIS
     Dosage: DOSE REPORTED: 100 MG/10 ML, FORM: INFUSION
     Route: 042
     Dates: start: 20091123, end: 20091218
  2. RITUXIMAB [Suspect]
     Dosage: DOSE REPORTED: 100 MG/10 ML
     Route: 042
     Dates: start: 200906, end: 200911
  3. RITUXIMAB [Suspect]
     Dosage: 1 cycle
     Route: 042
     Dates: start: 20091101, end: 20091201
  4. DEFLAZACORT [Concomitant]
     Indication: BONE DISORDER
     Route: 065
  5. NIMESULIDE [Concomitant]
     Route: 065
  6. CODEINE [Concomitant]
     Route: 065
  7. ATENOLOL [Concomitant]
     Indication: HYPERTENSION
     Dosage: DOSE; 25/12.5 MG; NO REGULAR FREQUENCY
     Route: 065
  8. NEXIUM [Concomitant]
     Route: 065
  9. ANGIPRESS (BRAZIL) [Concomitant]
     Indication: HYPERTENSION

REACTIONS (11)
  - Hypertension [Recovered/Resolved]
  - Gastric perforation [Not Recovered/Not Resolved]
  - Diabetes mellitus [Not Recovered/Not Resolved]
  - Headache [Recovered/Resolved]
  - Oedema peripheral [Not Recovered/Not Resolved]
  - Hypotension [Recovered/Resolved]
  - Alopecia [Recovered/Resolved]
  - Influenza [Recovered/Resolved]
  - Cough [Not Recovered/Not Resolved]
  - Stress [Unknown]
  - Gastric ulcer [Unknown]
